FAERS Safety Report 9579844 (Version 1)
Quarter: 2013Q4

REPORT INFORMATION
  Report Type: Spontaneous
  Country: US (occurrence: US)
  Receive Date: 20131002
  Receipt Date: 20131002
  Transmission Date: 20140711
  Serious: No
  Sender: FDA-Public Use
  Company Number: US-009507513-1310USA000719

PATIENT
  Sex: Female

DRUGS (2)
  1. REMERON [Suspect]
     Indication: AFFECTIVE DISORDER
     Route: 048
  2. REMERON [Suspect]
     Indication: ANXIETY DISORDER

REACTIONS (1)
  - Exposure during pregnancy [Recovered/Resolved]
